FAERS Safety Report 5591428-5 (Version None)
Quarter: 2008Q1

REPORT INFORMATION
  Report Type: 
  Country: None (occurrence: None)
  Receive Date: 20080111
  Receipt Date: 20080111
  Transmission Date: 20080703
  Serious: Yes (Hospitalization)
  Sender: FDA-Public Use
  Company Number: None

PATIENT
  Age: 59 Year
  Sex: Male
  Weight: 108 kg

DRUGS (3)
  1. CCI-779 (TEMSIROLIMUS) [Suspect]
     Indication: MULTIPLE MYELOMA
     Dosage: 25MG/M2 WEEKLY
     Dates: start: 20071205, end: 20071205
  2. VELCADE [Suspect]
     Indication: MULTIPLE MYELOMA
     Dosage: 1.3MG/M2 WEEKLY FOR 4
     Dates: start: 20071205, end: 20071205
  3. ACYCLOVIR [Concomitant]

REACTIONS (1)
  - BLOOD SODIUM DECREASED [None]
